FAERS Safety Report 6392761-X (Version None)
Quarter: 2009Q4

REPORT INFORMATION
  Report Type: 
  Country: None (occurrence: None)
  Receive Date: 20091007
  Receipt Date: 20090720
  Transmission Date: 20100525
  Serious: No
  Sender: FDA-Public Use
  Company Number: US-ALLERGAN-0910145US

PATIENT
  Age: 39 Year
  Sex: Female

DRUGS (3)
  1. LATISSE [Suspect]
     Indication: GROWTH OF EYELASHES
     Dosage: 1 GTT, QHS
     Route: 061
     Dates: start: 20090601
  2. XANAX [Concomitant]
     Indication: SLEEP DISORDER
  3. AMBIEN [Concomitant]
     Indication: SLEEP DISORDER

REACTIONS (2)
  - DRY EYE [None]
  - EYE PRURITUS [None]
